FAERS Safety Report 13689271 (Version 7)
Quarter: 2019Q2

REPORT INFORMATION
  Report Type: Spontaneous
  Country: US (occurrence: US)
  Receive Date: 20170626
  Receipt Date: 20190506
  Transmission Date: 20190711
  Serious: Yes (Other)
  Sender: FDA-Public Use
  Company Number: US-PFIZER INC-2017271287

PATIENT
  Age: 9 Year
  Sex: Male
  Weight: 19.5 kg

DRUGS (10)
  1. XOPENEX [Concomitant]
     Active Substance: LEVALBUTEROL HYDROCHLORIDE
     Dosage: UNK, AS NEEDED (EVERY 4 HOURS)
  2. NEXIUM [Concomitant]
     Active Substance: ESOMEPRAZOLE MAGNESIUM
     Dosage: 10 MG, 1X/DAY
     Route: 048
  3. GENOTROPIN [Suspect]
     Active Substance: SOMATROPIN
     Indication: DEVELOPMENTAL DELAY
     Dosage: 1 MG, CYCLIC (1X/DAY, 6 DAYS/WEEK)
     Dates: start: 20170513
  4. NEXIUM [Concomitant]
     Active Substance: ESOMEPRAZOLE MAGNESIUM
     Indication: GASTROOESOPHAGEAL REFLUX DISEASE
     Dosage: 20 MG, 1X/DAY
     Route: 048
  5. CLARITIN [Concomitant]
     Active Substance: LORATADINE
     Indication: HYPERSENSITIVITY
     Dosage: 10 MG, 1X/DAY
     Route: 048
  6. GENOTROPIN [Suspect]
     Active Substance: SOMATROPIN
     Dosage: 1.0 MG, CYCLIC (1.0MG DAILY EXCEPT ONE DAY OFF ONCE A WEEK)
     Dates: start: 20170511, end: 20170913
  7. GENOTROPIN [Suspect]
     Active Substance: SOMATROPIN
     Indication: BODY HEIGHT BELOW NORMAL
     Dosage: 1.0 MG, 1X/DAY (AT NIGHT)
     Dates: start: 20170511
  8. CLARITIN [Concomitant]
     Active Substance: LORATADINE
     Indication: RHINITIS
  9. ALBUTEROL. [Concomitant]
     Active Substance: ALBUTEROL
     Indication: ASTHMA
     Dosage: 2 DF (2 PUFFS), AS NEEDED (FOR RESCUE INHALER)
  10. XOPENEX [Concomitant]
     Active Substance: LEVALBUTEROL HYDROCHLORIDE
     Indication: ASTHMA
     Dosage: UNK, EVERY DAY

REACTIONS (9)
  - Device issue [Unknown]
  - Immune system disorder [Unknown]
  - Headache [Unknown]
  - Increased appetite [Unknown]
  - Nasopharyngitis [Recovering/Resolving]
  - Croup infectious [Recovering/Resolving]
  - Incorrect dosage administered [Unknown]
  - Product dose omission [Recovered/Resolved]
  - Pain [Unknown]

NARRATIVE: CASE EVENT DATE: 201705
